FAERS Safety Report 6393063-8 (Version None)
Quarter: 2009Q4

REPORT INFORMATION
  Report Type: 
  Country: None (occurrence: None)
  Receive Date: 20091008
  Receipt Date: 20091001
  Transmission Date: 20100525
  Serious: Yes (Hospitalization)
  Sender: FDA-Public Use
  Company Number: DE-ROCHE-641827

PATIENT
  Sex: Female
  Weight: 63 kg

DRUGS (8)
  1. CAPECITABINE [Suspect]
     Indication: BREAST CANCER
     Dosage: DAYS 1-14, ROUTE AND DOSAGE PER PROTOCOL.. DRUG PERMANENTLY DISCONTINUED.
     Route: 048
     Dates: start: 20090520, end: 20090622
  2. BEVACIZUMAB [Suspect]
     Indication: BREAST CANCER
     Dosage: DAY 1, ROUTE AND DOSAGE PER PROTOCOL. THERAPY PERMANENTLY DISCONTINUED.
     Route: 042
     Dates: start: 20090520, end: 20090622
  3. PREDNISOLONE [Concomitant]
  4. METEX [Concomitant]
  5. GLUCOBAY [Concomitant]
  6. METFORMIN [Concomitant]
  7. ALENDRONATE SODIUM [Concomitant]
     Dosage: DRUG NAME GIVEN AS ^ALENDRONAT^
  8. MENOCONFORT [Concomitant]
     Dates: start: 20090622

REACTIONS (3)
  - DIARRHOEA [None]
  - DIVERTICULITIS [None]
  - STOMATITIS [None]
